FAERS Safety Report 10669713 (Version 6)
Quarter: 2022Q3

REPORT INFORMATION
  Report Type: Spontaneous
  Country: US (occurrence: US)
  Receive Date: 20141222
  Receipt Date: 20220821
  Transmission Date: 20221027
  Serious: Yes (Other)
  Sender: FDA-Public Use
  Company Number: US-GLAXOSMITHKLINE-A0983543A

PATIENT
  Age: 53 Year
  Sex: Male
  Weight: 80 kg

DRUGS (14)
  1. PROMACTA [Suspect]
     Active Substance: ELTROMBOPAG OLAMINE
     Indication: Product used for unknown indication
     Dosage: 25MG DAILY.
     Route: 048
  2. PROMACTA [Suspect]
     Active Substance: ELTROMBOPAG OLAMINE
     Dosage: UNK
  3. PROMACTA [Suspect]
     Active Substance: ELTROMBOPAG OLAMINE
     Dosage: 25 MG, QD
     Dates: start: 20140412
  4. UNSPECIFIED INGREDIENT [Suspect]
     Active Substance: UNSPECIFIED INGREDIENT
     Indication: Product used for unknown indication
     Route: 065
  5. PANCREASE MT [Concomitant]
     Active Substance: PANCRELIPASE
     Route: 048
  6. LACTULOSE [Concomitant]
     Active Substance: LACTULOSE
     Dosage: 10 GM/15
  7. FUROSEMIDE [Concomitant]
     Active Substance: FUROSEMIDE
     Route: 048
  8. FLUOXETINE [Concomitant]
     Active Substance: FLUOXETINE HYDROCHLORIDE
     Route: 048
  9. FENTANYL [Concomitant]
     Active Substance: FENTANYL
     Dosage: 25 MCG/HR
  10. PROMETHAZINE [Concomitant]
     Active Substance: PROMETHAZINE HYDROCHLORIDE
     Route: 048
  11. PROPRANOLOL [Concomitant]
     Active Substance: PROPRANOLOL HYDROCHLORIDE
     Route: 048
  12. SPIRONOLACTONE [Concomitant]
     Active Substance: SPIRONOLACTONE
     Route: 050
  13. MORPHINE SULFATE [Concomitant]
     Active Substance: MORPHINE SULFATE
     Route: 048
  14. DOCUSATE [Concomitant]
     Active Substance: DOCUSATE
     Route: 048

REACTIONS (13)
  - Platelet count decreased [Unknown]
  - Fatigue [Unknown]
  - Loss of consciousness [Unknown]
  - Abdominal pain [Unknown]
  - Feeding disorder [Unknown]
  - Hepatic pain [Unknown]
  - Nausea [Unknown]
  - Loss of personal independence in daily activities [Unknown]
  - Gastric disorder [Unknown]
  - Dizziness [Unknown]
  - Product dose omission issue [Unknown]
  - Bone density decreased [Unknown]
  - Illness [Unknown]

NARRATIVE: CASE EVENT DATE: 20120619
